FAERS Safety Report 5078002-4 (Version None)
Quarter: 2006Q3

REPORT INFORMATION
  Report Type: 
  Country: None (occurrence: None)
  Receive Date: 20060811
  Receipt Date: 20060731
  Transmission Date: 20061208
  Serious: Yes (Hospitalization)
  Sender: FDA-Public Use
  Company Number: AU-JNJFOC-20060801236

PATIENT
  Sex: Female
  Weight: 70 kg

DRUGS (1)
  1. TRAMADOL HCL [Suspect]
     Indication: SENSORY DISTURBANCE
     Route: 048
     Dates: start: 20060118, end: 20060123

REACTIONS (1)
  - HYPONATRAEMIA [None]
